FAERS Safety Report 24607288 (Version 1)
Quarter: 2024Q4

REPORT INFORMATION
  Report Type: Spontaneous
  Country: US (occurrence: None)
  Receive Date: 20241110
  Receipt Date: 20241110
  Transmission Date: 20250115
  Serious: Yes (Other)
  Sender: Public
  Company Number: None

PATIENT
  Age: 63 Year
  Sex: Female

DRUGS (2)
  1. PAXLOVID [Suspect]
     Active Substance: NIRMATRELVIR\RITONAVIR
     Indication: COVID-19
     Dosage: 300 MG TWICE  DAY ORAL ?
     Route: 048
     Dates: start: 20241108, end: 20241110
  2. LAMOTRIGINE [Suspect]
     Active Substance: LAMOTRIGINE
     Indication: Seizure
     Dosage: 250 MG TWICE  DAY ORAL?
     Route: 048

REACTIONS (2)
  - Seizure [None]
  - Thinking abnormal [None]

NARRATIVE: CASE EVENT DATE: 20241108
